FAERS Safety Report 5890621-1 (Version None)
Quarter: 2008Q3

REPORT INFORMATION
  Report Type: 
  Country: None (occurrence: None)
  Receive Date: 20080922
  Receipt Date: 20080528
  Transmission Date: 20090109
  Serious: No
  Sender: FDA-Public Use
  Company Number: US-BAYER-200824359NA

PATIENT
  Age: 65 Year
  Sex: Female
  Weight: 72 kg

DRUGS (8)
  1. AVELOX [Suspect]
     Indication: CHEST PAIN
     Dosage: TOTAL DAILY DOSE: 400 MG  UNIT DOSE: 400 MG
     Route: 048
     Dates: start: 20071018, end: 20071022
  2. HUMIRA [Suspect]
     Indication: RHEUMATOID ARTHRITIS
     Route: 058
     Dates: start: 20070101, end: 20070901
  3. LORATADINE [Concomitant]
     Indication: MULTIPLE ALLERGIES
  4. NAPROXEN [Concomitant]
     Indication: PAIN
  5. ACETAMINOPHEN [Concomitant]
     Indication: PAIN
  6. CARBAMAZEPINE [Concomitant]
     Indication: CONVULSION
  7. AMLODIPINE [Concomitant]
     Indication: BLOOD PRESSURE ABNORMAL
  8. ALLEGRA-D [Concomitant]
     Indication: MULTIPLE ALLERGIES

REACTIONS (13)
  - ANOREXIA [None]
  - ASTHENIA [None]
  - CHEST PAIN [None]
  - COUGH [None]
  - DIZZINESS [None]
  - DYSPHASIA [None]
  - DYSPNOEA [None]
  - EYE PAIN [None]
  - INFLUENZA LIKE ILLNESS [None]
  - MALAISE [None]
  - NASOPHARYNGITIS [None]
  - NAUSEA [None]
  - PAIN [None]
